FAERS Safety Report 8483204-0 (Version None)
Quarter: 2012Q3

REPORT INFORMATION
  Report Type: 
  Country: None (occurrence: None)
  Receive Date: 20120702
  Receipt Date: 20120625
  Transmission Date: 20120928
  Serious: Yes (Death)
  Sender: FDA-Public Use
  Company Number: US-ROCHE-1073597

PATIENT
  Sex: Female
  Weight: 56.75 kg

DRUGS (13)
  1. ACTEMRA [Suspect]
     Indication: RHEUMATOID ARTHRITIS
     Route: 042
     Dates: start: 20120301, end: 20120530
  2. CARVEDILOL [Concomitant]
     Route: 048
  3. NITROSTAT [Concomitant]
  4. FISH OIL [Concomitant]
  5. ACTEMRA [Suspect]
     Route: 042
     Dates: start: 20120530
  6. PRADAXA [Concomitant]
     Route: 048
  7. LEFLUNOMIDE [Concomitant]
     Route: 048
  8. POTASSIUM CHLORIDE [Concomitant]
  9. ACTEMRA [Suspect]
     Route: 042
     Dates: start: 20120501
  10. AMLODIPINE [Concomitant]
     Dosage: 5/20 MG
     Route: 048
  11. PANTOPRAZOLE SODIUM [Concomitant]
  12. FUROSEMIDE/POTASSIUM CHLORIDE [Concomitant]
     Route: 048
  13. DILTIAZEM HYDROCHOLORIDE [Concomitant]
     Route: 048

REACTIONS (1)
  - CARDIAC ARREST [None]
